FAERS Safety Report 19430918 (Version 1)
Quarter: 2021Q2

REPORT INFORMATION
  Report Type: Spontaneous
  Country: US (occurrence: US)
  Receive Date: 20210618
  Receipt Date: 20210618
  Transmission Date: 20210717
  Serious: No
  Sender: FDA-Public Use
  Company Number: US-ROCHE-2709376

PATIENT
  Age: 26 Year
  Sex: Male
  Weight: 101.24 kg

DRUGS (2)
  1. PREDNISONE. [Concomitant]
     Active Substance: PREDNISONE
     Indication: JUVENILE IDIOPATHIC ARTHRITIS
  2. ACTEMRA [Suspect]
     Active Substance: TOCILIZUMAB
     Indication: STILL^S DISEASE
     Route: 058
     Dates: start: 2019

REACTIONS (2)
  - Still^s disease [Unknown]
  - Product storage error [Unknown]

NARRATIVE: CASE EVENT DATE: 201910
